FAERS Safety Report 9783861 (Version 1)
Quarter: 2013Q4

REPORT INFORMATION
  Report Type: Spontaneous
  Country: US (occurrence: US)
  Receive Date: 20131226
  Receipt Date: 20131226
  Transmission Date: 20140711
  Serious: Yes (Disabling)
  Sender: FDA-Public Use
  Company Number: US-009507513-1312USA007629

PATIENT
  Age: 68 Year
  Sex: Male

DRUGS (15)
  1. ISENTRESS [Suspect]
     Indication: HIV INFECTION
     Dosage: 400 MG, BID
     Route: 048
     Dates: start: 2010, end: 2013
  2. TRUVADA [Concomitant]
  3. ATENOLOL [Concomitant]
  4. CALCIUM (UNSPECIFIED) [Concomitant]
  5. DARUNAVIR [Concomitant]
  6. EMTRICITABINE [Concomitant]
  7. FOLIC ACID [Concomitant]
  8. GLIPIZIDE [Concomitant]
  9. LOPERAMIDE HYDROCHLORIDE [Concomitant]
  10. OMEPRAZOLE [Concomitant]
     Route: 048
  11. PRAVASTATIN SODIUM [Concomitant]
  12. PYRIDOXINE [Concomitant]
  13. RANITIDINE [Concomitant]
  14. RITONAVIR [Concomitant]
  15. TRIBUZONE [Concomitant]

REACTIONS (10)
  - Communication disorder [Recovering/Resolving]
  - Abnormal behaviour [Recovering/Resolving]
  - Personality change [Recovering/Resolving]
  - Aggression [Recovering/Resolving]
  - Anxiety [Recovering/Resolving]
  - Depression [Recovering/Resolving]
  - Abulia [Recovering/Resolving]
  - Speech disorder [Recovering/Resolving]
  - Confusional state [Recovering/Resolving]
  - Emotional disorder [Recovering/Resolving]
